FAERS Safety Report 4766856-8 (Version None)
Quarter: 2005Q3

REPORT INFORMATION
  Report Type: 
  Country: None (occurrence: None)
  Receive Date: 20050909
  Receipt Date: 20050826
  Transmission Date: 20060218
  Serious: Yes (Hospitalization)
  Sender: FDA-Public Use
  Company Number: HQWYE850311AUG05

PATIENT
  Age: 84 Year
  Sex: Male

DRUGS (7)
  1. CORDARONE [Suspect]
     Indication: TACHYCARDIA
     Dosage: 200 MG 1X PER DAY, ORAL
     Route: 048
     Dates: start: 20010615, end: 20050524
  2. NITRIDERM TTS (GLYCERYL TRINITRATE) [Concomitant]
  3. MEXITIL [Concomitant]
  4. RAMIPRIL [Concomitant]
  5. PRAZOSIN HCL [Concomitant]
  6. PRAVASTATIN [Concomitant]
  7. FUROSEMIDE [Concomitant]

REACTIONS (9)
  - BLOOD ALKALINE PHOSPHATASE INCREASED [None]
  - CONGESTIVE CARDIOMYOPATHY [None]
  - GAMMA-GLUTAMYLTRANSFERASE INCREASED [None]
  - GENERAL PHYSICAL HEALTH DETERIORATION [None]
  - JAUNDICE [None]
  - MITRAL VALVE INCOMPETENCE [None]
  - PRURITUS [None]
  - PULMONARY HYPERTENSION [None]
  - WEIGHT DECREASED [None]
